FAERS Safety Report 8597072-X (Version None)
Quarter: 2012Q3

REPORT INFORMATION
  Report Type: 
  Country: None (occurrence: None)
  Receive Date: 20120816
  Receipt Date: 20120807
  Transmission Date: 20120928
  Serious: Yes (Other)
  Sender: FDA-Public Use
  Company Number: FR-BIOGENIDEC-2012BI029920

PATIENT
  Age: 26 Year
  Sex: Female

DRUGS (3)
  1. MUSCLE RELAXANTS [Concomitant]
  2. ANTIEPILEPTICS [Concomitant]
  3. TYSABRI [Suspect]
     Indication: MULTIPLE SCLEROSIS
     Route: 042
     Dates: start: 20071110

REACTIONS (1)
  - BREAST CANCER [None]
